FAERS Safety Report 14343431 (Version 1)
Quarter: 2018Q1

REPORT INFORMATION
  Report Type: Spontaneous
  Country: US (occurrence: US)
  Receive Date: 20180101
  Receipt Date: 20180101
  Transmission Date: 20180509
  Serious: Yes (Other)
  Sender: FDA-Public Use
  Company Number: None

PATIENT
  Age: 5 Year
  Sex: Male
  Weight: 15.75 kg

DRUGS (1)
  1. EMFLAZA [Suspect]
     Active Substance: DEFLAZACORT
     Indication: DUCHENNE MUSCULAR DYSTROPHY
     Dates: start: 20170619, end: 20170619

REACTIONS (7)
  - Aggression [None]
  - Anger [None]
  - Intentional self-injury [None]
  - Rash [None]
  - Irritability [None]
  - Cushingoid [None]
  - Product substitution issue [None]

NARRATIVE: CASE EVENT DATE: 20170901
